FAERS Safety Report 16702117 (Version 3)
Quarter: 2021Q2

REPORT INFORMATION
  Report Type: Spontaneous
  Country: US (occurrence: US)
  Receive Date: 20190814
  Receipt Date: 20210525
  Transmission Date: 20210716
  Serious: No
  Sender: FDA-Public Use
  Company Number: US-PFIZER INC-2017397462

PATIENT
  Age: 50 Year
  Sex: Male
  Weight: 123.81 kg

DRUGS (3)
  1. SOMATULINE DEPOT [Concomitant]
     Active Substance: LANREOTIDE ACETATE
     Dosage: UNK
  2. SOMAVERT [Suspect]
     Active Substance: PEGVISOMANT
     Indication: GIGANTISM
  3. SOMAVERT [Suspect]
     Active Substance: PEGVISOMANT
     Indication: ACROMEGALY
     Dosage: 30 MG, DOSES 3 TIMES PER WEEK/ INJECT 30 MG UNDER THE SKIN)
     Route: 058
     Dates: start: 201406

REACTIONS (3)
  - Intentional product misuse [Unknown]
  - Sedation [Unknown]
  - Injection site discomfort [Unknown]
